FAERS Safety Report 5089524-4 (Version None)
Quarter: 2006Q3

REPORT INFORMATION
  Report Type: 
  Country: None (occurrence: None)
  Receive Date: 20060822
  Receipt Date: 20060731
  Transmission Date: 20061208
  Serious: No
  Sender: FDA-Public Use
  Company Number: US200608000619

PATIENT
  Age: 54 Year
  Sex: Male

DRUGS (4)
  1. CYMBALTA [Suspect]
     Dosage: SEE IMAGE
     Dates: start: 20051101, end: 20060420
  2. CYMBALTA [Suspect]
     Dosage: SEE IMAGE
     Dates: start: 20060623, end: 20060720
  3. XANAX [Concomitant]
  4. OXYCODONE (OXYCODONE) [Concomitant]

REACTIONS (4)
  - DISEASE RECURRENCE [None]
  - LIVER FUNCTION TEST ABNORMAL [None]
  - MAJOR DEPRESSION [None]
  - MALAISE [None]
